FAERS Safety Report 24960415 (Version 1)
Quarter: 2025Q1

REPORT INFORMATION
  Report Type: Report from Study
  Country: US (occurrence: US)
  Receive Date: 20250212
  Receipt Date: 20250212
  Transmission Date: 20250409
  Serious: Yes (Other)
  Sender: ABBVIE
  Company Number: US-ABBVIE-6128381

PATIENT
  Sex: Female

DRUGS (1)
  1. BOTOX [Suspect]
     Active Substance: ONABOTULINUMTOXINA
     Indication: Migraine
     Route: 065

REACTIONS (5)
  - Coma [Unknown]
  - Cerebrovascular accident [Unknown]
  - Headache [Unknown]
  - Tinnitus [Unknown]
  - Tension [Unknown]

NARRATIVE: CASE EVENT DATE: 20240101
